FAERS Safety Report 12596607 (Version 2)
Quarter: 2016Q4

REPORT INFORMATION
  Report Type: Spontaneous
  Country: US (occurrence: US)
  Receive Date: 20160727
  Receipt Date: 20161018
  Transmission Date: 20170207
  Serious: No
  Sender: FDA-Public Use
  Company Number: US-ASTRAZENECA-2016SE70420

PATIENT
  Age: 1042 Month
  Sex: Female
  Weight: 69.4 kg

DRUGS (14)
  1. SYMBICORT [Suspect]
     Active Substance: BUDESONIDE\FORMOTEROL FUMARATE DIHYDRATE
     Indication: ASTHMA
     Dosage: 80/4.5 MCG TWO PUFFS TWICE A DAY
     Route: 055
     Dates: start: 2015
  2. PRESSER VISION [Concomitant]
     Indication: EYE DISORDER
  3. SYMBICORT [Suspect]
     Active Substance: BUDESONIDE\FORMOTEROL FUMARATE DIHYDRATE
     Indication: ASTHMA
     Dosage: 80/4.5 MCG TWO PUFFS TWICE A DAY
     Route: 055
     Dates: start: 2015
  4. SYMBICORT [Suspect]
     Active Substance: BUDESONIDE\FORMOTEROL FUMARATE DIHYDRATE
     Indication: ASTHMA
     Dosage: 80/4.5 MCG TWO PUFFS TWICE A DAY
     Route: 055
     Dates: start: 20160617
  5. LISINOPRIL. [Suspect]
     Active Substance: LISINOPRIL
     Indication: BLOOD PRESSURE ABNORMAL
     Dosage: DAILY
     Route: 048
  6. PRILOSEC [Suspect]
     Active Substance: OMEPRAZOLE MAGNESIUM
     Indication: GASTROOESOPHAGEAL REFLUX DISEASE
     Route: 048
  7. SIMVASTATIIN [Concomitant]
     Indication: BLOOD CHOLESTEROL ABNORMAL
  8. AMITRIPTYLINE / CHLORDIAZEPOXIDE [Concomitant]
     Indication: SLEEP DISORDER
     Dosage: 2 UNKNOWN
  9. METOPROLOL SUCCINATE. [Suspect]
     Active Substance: METOPROLOL SUCCINATE
     Indication: BLOOD PRESSURE ABNORMAL
     Route: 048
  10. ASPIRIN. [Concomitant]
     Active Substance: ASPIRIN
  11. SPIROLACTONE [Concomitant]
     Active Substance: SPIRONOLACTONE
     Indication: BLOOD PRESSURE ABNORMAL
     Dosage: 25 UNKNOWN,DAILY
  12. SYMBICORT [Suspect]
     Active Substance: BUDESONIDE\FORMOTEROL FUMARATE DIHYDRATE
     Indication: ASTHMA
     Dosage: 80/4.5 MCG TWO PUFFS TWICE A DAY
     Route: 055
     Dates: start: 20160617
  13. PRILOSEC [Suspect]
     Active Substance: OMEPRAZOLE MAGNESIUM
     Indication: GASTROOESOPHAGEAL REFLUX DISEASE
     Dosage: TWO DAILY
     Route: 048
  14. LEVOTHYROXINE. [Concomitant]
     Active Substance: LEVOTHYROXINE
     Indication: THYROID DISORDER
     Dosage: 50 UNKNOWN DAILY
     Dates: start: 2013

REACTIONS (8)
  - Glaucoma [Unknown]
  - Fall [Unknown]
  - Fatigue [Unknown]
  - Device failure [Unknown]
  - Spinal fracture [Unknown]
  - Weight decreased [Unknown]
  - Hypertension [Unknown]
  - Drug dose omission [Unknown]

NARRATIVE: CASE EVENT DATE: 201512
